FAERS Safety Report 16009911 (Version 1)
Quarter: 2019Q1

REPORT INFORMATION
  Report Type: Spontaneous
  Country: US (occurrence: US)
  Receive Date: 20190227
  Receipt Date: 20190227
  Transmission Date: 20190418
  Serious: No
  Sender: FDA-Public Use
  Company Number: US-SA-2019SA050185

PATIENT
  Age: 23 Year
  Sex: Female

DRUGS (1)
  1. LUMIZYME [Suspect]
     Active Substance: ALGLUCOSIDASE ALFA
     Indication: GLYCOGEN STORAGE DISEASE TYPE V
     Dosage: 1800 MG, QOW
     Route: 041
     Dates: start: 20150506

REACTIONS (2)
  - Complication associated with device [Unknown]
  - Underdose [Unknown]

NARRATIVE: CASE EVENT DATE: 20190209
